FAERS Safety Report 8084622-5 (Version None)
Quarter: 2012Q1

REPORT INFORMATION
  Report Type: 
  Country: None (occurrence: None)
  Receive Date: 20120128
  Receipt Date: 20110330
  Transmission Date: 20120608
  Serious: No
  Sender: FDA-Public Use
  Company Number: US-ABBOTT-11P-163-0715296-00

PATIENT
  Age: 62 Year
  Sex: Female

DRUGS (5)
  1. LORAZEPAM [Concomitant]
     Indication: ANXIETY
     Dosage: 0.5MG DAILY
  2. PROZAC [Concomitant]
     Indication: ANXIETY
     Dosage: 25MG DAILY
  3. LANTUS [Concomitant]
     Indication: DIABETES MELLITUS
     Dosage: 65 UNITS DAILY
  4. HUMIRA [Suspect]
     Indication: RHEUMATOID ARTHRITIS
     Dates: start: 20110316
  5. SIMVASTATIN [Concomitant]
     Indication: BLOOD CHOLESTEROL
     Dosage: 100MG DAILY

REACTIONS (1)
  - CRYING [None]
